FAERS Safety Report 17575073 (Version 1)
Quarter: 2020Q1

REPORT INFORMATION
  Report Type: Report from Study
  Country: CO (occurrence: CO)
  Receive Date: 20200324
  Receipt Date: 20200324
  Transmission Date: 20200409
  Serious: Yes (Hospitalization, Other)
  Sender: FDA-Public Use
  Company Number: CO-ROCHE-2433647

PATIENT
  Sex: Female

DRUGS (1)
  1. MABTHERA [Suspect]
     Active Substance: RITUXIMAB
     Indication: ARTHRITIS
     Route: 065

REACTIONS (15)
  - Vein disorder [Unknown]
  - Pain [Unknown]
  - Dizziness [Unknown]
  - Hypotension [Unknown]
  - Malaise [Unknown]
  - Foot prosthesis user [Unknown]
  - Systemic inflammatory response syndrome [Unknown]
  - Prosthesis user [Unknown]
  - Generalised oedema [Unknown]
  - Arthritis [Unknown]
  - Swelling [Unknown]
  - Asphyxia [Unknown]
  - Localised infection [Unknown]
  - Cardiac disorder [Unknown]
  - Lung disorder [Unknown]
